FAERS Safety Report 8780315 (Version 1)
Quarter: 2012Q4

REPORT INFORMATION
  Report Type: Spontaneous
  Country: US (occurrence: None)
  Receive Date: 20120830
  Receipt Date: 20120830
  Transmission Date: 20130627
  Serious: Yes (Hospitalization)
  Sender: FDA-Public Use
  Company Number: 2012PL000153

PATIENT
  Age: 27 Year
  Sex: Male

DRUGS (4)
  1. ZYLOPRIM [Suspect]
     Route: 048
  2. COLCHICINE [Suspect]
  3. PLACEBO [Suspect]
  4. REGENERON [Suspect]

REACTIONS (2)
  - Arthritis [None]
  - Joint effusion [None]
